FAERS Safety Report 6533831-2 (Version None)
Quarter: 2010Q1

REPORT INFORMATION
  Report Type: 
  Country: None (occurrence: None)
  Receive Date: 20100111
  Receipt Date: 20091215
  Transmission Date: 20100710
  Serious: No
  Sender: FDA-Public Use
  Company Number: US-ABBOTT-09P-163-0615578-00

PATIENT
  Sex: Female
  Weight: 68.1 kg

DRUGS (3)
  1. VICODIN [Suspect]
     Indication: PROCEDURAL PAIN
     Dates: start: 20070101
  2. UNKNOWN HEART MEDICATIONS [Concomitant]
     Indication: DRUG USE FOR UNKNOWN INDICATION
  3. BC ARTHRITIS STRENGTH [Concomitant]
     Indication: DRUG USE FOR UNKNOWN INDICATION

REACTIONS (3)
  - ARRHYTHMIA [None]
  - DRUG INEFFECTIVE [None]
  - SOMNOLENCE [None]
